FAERS Safety Report 17305705 (Version 3)
Quarter: 2020Q1

REPORT INFORMATION
  Report Type: Report from Study
  Country: US (occurrence: US)
  Receive Date: 20200123
  Receipt Date: 20200317
  Transmission Date: 20200409
  Serious: Yes (Other)
  Sender: FDA-Public Use
  Company Number: US-PFIZER INC-2019555224

PATIENT
  Age: 69 Year
  Sex: Male

DRUGS (1)
  1. SUTENT [Suspect]
     Active Substance: SUNITINIB MALATE
     Indication: GASTROINTESTINAL STROMAL TUMOUR
     Dosage: 37.5 MG, 1X/DAY
     Route: 048
     Dates: start: 20191211

REACTIONS (20)
  - Gastrointestinal motility disorder [Unknown]
  - Oral pain [Unknown]
  - Ageusia [Unknown]
  - Dyspepsia [Unknown]
  - Bone marrow failure [Recovering/Resolving]
  - Nasopharyngitis [Recovered/Resolved]
  - Abdominal pain upper [Recovering/Resolving]
  - Fatigue [Not Recovered/Not Resolved]
  - Diarrhoea [Recovering/Resolving]
  - Constipation [Recovered/Resolved]
  - Haemorrhoids [Recovered/Resolved]
  - Blood iron decreased [Unknown]
  - Weight decreased [Unknown]
  - Haemoglobin increased [Recovered/Resolved]
  - Nausea [Recovered/Resolved]
  - Taste disorder [Recovered/Resolved]
  - Dry mouth [Recovered/Resolved]
  - Haemorrhoidal haemorrhage [Recovered/Resolved]
  - Blister [Unknown]
  - Dyspepsia [Recovered/Resolved]

NARRATIVE: CASE EVENT DATE: 201912
